FAERS Safety Report 4309323-8 (Version None)
Quarter: 2004Q1

REPORT INFORMATION
  Report Type: 
  Country: None (occurrence: None)
  Receive Date: 20040302
  Receipt Date: 20040204
  Transmission Date: 20041129
  Serious: Yes (Life-Threatening, Hospitalization)
  Sender: FDA-Public Use
  Company Number: JP-GLAXOSMITHKLINE-B0322195A

PATIENT
  Age: 66 Year
  Sex: Male

DRUGS (7)
  1. CEFAZOLIN [Suspect]
     Indication: ANTIBACTERIAL PROPHYLAXIS
     Dosage: 1G PER DAY
     Route: 042
     Dates: start: 20020515, end: 20020515
  2. PHENOBAL [Suspect]
     Indication: INSOMNIA
     Dosage: 100MG PER DAY
     Route: 042
     Dates: start: 20020516, end: 20020516
  3. DIAZEPAM [Concomitant]
     Indication: ANXIETY
     Dosage: 2MG TWICE PER DAY
     Route: 048
     Dates: start: 20020515, end: 20020524
  4. HYDROXYZINE HYDROCHLORIDE [Concomitant]
     Indication: ANXIETY
     Route: 042
     Dates: start: 20020516, end: 20020516
  5. ALLOPURINOL [Concomitant]
     Indication: GOUT
     Route: 048
     Dates: start: 20020515, end: 20020524
  6. GLYBURIDE [Concomitant]
     Indication: DIABETES MELLITUS
     Dosage: 2.5MG TWICE PER DAY
     Route: 048
     Dates: start: 20020515
  7. LEVOFLOXACIN [Concomitant]
     Indication: INFLAMMATION
     Dosage: 100MG THREE TIMES PER DAY
     Route: 048
     Dates: start: 20020520, end: 20020523

REACTIONS (9)
  - BALANOPOSTHITIS [None]
  - BLISTER [None]
  - ERYTHEMA [None]
  - EXCORIATION [None]
  - MALAISE [None]
  - OCULOMUCOCUTANEOUS SYNDROME [None]
  - PRURITUS GENITAL [None]
  - PYREXIA [None]
  - STEVENS-JOHNSON SYNDROME [None]
